FAERS Safety Report 10020800 (Version 1)
Quarter: 2014Q1

REPORT INFORMATION
  Report Type: Spontaneous
  Country: NL (occurrence: NL)
  Receive Date: 20140319
  Receipt Date: 20140319
  Transmission Date: 20141002
  Serious: Yes (Other)
  Sender: FDA-Public Use
  Company Number: NL-SUN PHARMACEUTICAL INDUSTRIES LTD-2014SUN00560

PATIENT
  Sex: 0

DRUGS (9)
  1. OXALIPLATIN [Suspect]
     Indication: COLON CANCER
     Dosage: 170 MG, OD
     Route: 065
     Dates: start: 20140206
  2. OXALIPLATIN [Suspect]
     Dosage: 170 MG, UNK
     Dates: start: 20140220
  3. FOLFOX CHEMOTHERAPY [Concomitant]
  4. DEXAMETHASONE [Concomitant]
     Dosage: 6 MG, UNK
  5. INSULIN REGULAR, ASPARTATE [Concomitant]
  6. TOLBUTAMIDE [Concomitant]
     Dosage: 1000, 500, 500 MG
  7. METFORMIN [Concomitant]
     Dosage: 750 MG, UNK
  8. METOCLOPRAMIDE [Concomitant]
     Dosage: 30 MG, PRN
  9. METTROGEL [Concomitant]

REACTIONS (4)
  - Swollen tongue [Recovered/Resolved]
  - Muscle spasms [Recovered/Resolved]
  - Bronchospasm [Recovered/Resolved]
  - Pruritus [Recovered/Resolved]
